FAERS Safety Report 4773060-6 (Version None)
Quarter: 2005Q3

REPORT INFORMATION
  Report Type: 
  Country: None (occurrence: None)
  Receive Date: 20050919
  Receipt Date: 20050909
  Transmission Date: 20060218
  Serious: Yes (Life-Threatening, Other)
  Sender: FDA-Public Use
  Company Number: SI-BRISTOL-MYERS SQUIBB COMPANY-13110663

PATIENT
  Age: 25 Year
  Sex: Male

DRUGS (4)
  1. ABILIFY [Suspect]
     Route: 048
  2. HEROIN [Suspect]
     Dates: start: 20050906
  3. SEROQUEL [Concomitant]
     Route: 048
  4. SEROXAT [Concomitant]
     Route: 048

REACTIONS (2)
  - DRUG DEPENDENCE [None]
  - LOSS OF CONSCIOUSNESS [None]
